FAERS Safety Report 24791291 (Version 1)
Quarter: 2024Q4

REPORT INFORMATION
  Report Type: Spontaneous
  Country: US (occurrence: US)
  Receive Date: 20241230
  Receipt Date: 20241230
  Transmission Date: 20250115
  Serious: Yes (Hospitalization)
  Sender: AUROBINDO
  Company Number: US-AUROBINDO-AUR-APL-2024-062771

PATIENT
  Sex: Male

DRUGS (22)
  1. AZITHROMYCIN [Suspect]
     Active Substance: AZITHROMYCIN
     Indication: Osteomyelitis bacterial
     Dosage: UNK
     Route: 065
  2. AZITHROMYCIN [Suspect]
     Active Substance: AZITHROMYCIN
     Indication: Soft tissue infection
  3. LINEZOLID [Suspect]
     Active Substance: LINEZOLID
     Indication: Osteomyelitis bacterial
     Dosage: UNK
     Route: 065
  4. LINEZOLID [Suspect]
     Active Substance: LINEZOLID
     Indication: Soft tissue infection
  5. TEDIZOLID [Suspect]
     Active Substance: TEDIZOLID
     Indication: Osteomyelitis
     Dosage: UNK
     Route: 065
  6. TEDIZOLID [Suspect]
     Active Substance: TEDIZOLID
     Indication: Soft tissue infection
  7. IMIPENEM [Suspect]
     Active Substance: IMIPENEM
     Indication: Osteomyelitis
     Dosage: UNK
     Route: 065
  8. IMIPENEM [Suspect]
     Active Substance: IMIPENEM
     Indication: Soft tissue infection
  9. ERAVACYCLINE [Suspect]
     Active Substance: ERAVACYCLINE
     Indication: Osteomyelitis bacterial
     Dosage: UNK
     Route: 065
  10. ERAVACYCLINE [Suspect]
     Active Substance: ERAVACYCLINE
     Indication: Soft tissue infection
  11. AMIKACIN [Suspect]
     Active Substance: AMIKACIN
     Indication: Osteomyelitis bacterial
     Dosage: UNK
     Route: 042
  12. AMIKACIN [Suspect]
     Active Substance: AMIKACIN
     Indication: Soft tissue infection
  13. BEDAQUILINE [Suspect]
     Active Substance: BEDAQUILINE
     Indication: Osteomyelitis
     Dosage: UNK
     Route: 065
  14. BEDAQUILINE [Suspect]
     Active Substance: BEDAQUILINE
     Indication: Soft tissue infection
  15. CLOFAZIMINE [Concomitant]
     Active Substance: CLOFAZIMINE
     Indication: Osteomyelitis bacterial
     Dosage: UNK
     Route: 065
  16. CLOFAZIMINE [Concomitant]
     Active Substance: CLOFAZIMINE
     Indication: Soft tissue infection
  17. OMADACYCLINE [Concomitant]
     Active Substance: OMADACYCLINE
     Indication: Osteomyelitis bacterial
     Dosage: UNK
     Route: 065
  18. OMADACYCLINE [Concomitant]
     Active Substance: OMADACYCLINE
     Indication: Soft tissue infection
  19. MEROPENEM [Concomitant]
     Active Substance: MEROPENEM
     Indication: Osteomyelitis bacterial
     Dosage: UNK
     Route: 065
  20. MEROPENEM [Concomitant]
     Active Substance: MEROPENEM
     Indication: Soft tissue infection
  21. AVIBACTAM SODIUM\CEFTAZIDIME [Concomitant]
     Active Substance: AVIBACTAM SODIUM\CEFTAZIDIME
     Indication: Osteomyelitis bacterial
     Dosage: UNK
     Route: 065
  22. AVIBACTAM SODIUM\CEFTAZIDIME [Concomitant]
     Active Substance: AVIBACTAM SODIUM\CEFTAZIDIME
     Indication: Soft tissue infection

REACTIONS (1)
  - Drug ineffective [Unknown]
